FAERS Safety Report 9669738 (Version 3)
Quarter: 2013Q4

REPORT INFORMATION
  Report Type: Report from Study
  Country: US (occurrence: US)
  Receive Date: 20131105
  Receipt Date: 20131125
  Transmission Date: 20140711
  Serious: Yes (Hospitalization)
  Sender: FDA-Public Use
  Company Number: US-ACTELION-A-US2013-90463

PATIENT
  Age: 77 Year
  Sex: Female

DRUGS (3)
  1. TRACLEER [Suspect]
     Indication: PULMONARY ARTERIAL HYPERTENSION
     Dosage: UNK
     Route: 048
  2. REMODULIN [Suspect]
     Indication: PULMONARY HYPERTENSION
     Dosage: 48.96 ?G/KG,
     Route: 058
     Dates: start: 20130212
  3. COUMADIN [Concomitant]

REACTIONS (2)
  - Clostridium difficile infection [Unknown]
  - Dyspnoea [Unknown]
